FAERS Safety Report 15579937 (Version 2)
Quarter: 2018Q4

REPORT INFORMATION
  Report Type: Spontaneous
  Country: AT (occurrence: AT)
  Receive Date: 20181102
  Receipt Date: 20181127
  Transmission Date: 20190205
  Serious: Yes (Death, Other)
  Sender: FDA-Public Use
  Company Number: AT-UNITED THERAPEUTICS-UNT-2018-017867

PATIENT

DRUGS (1)
  1. REMODULIN [Suspect]
     Active Substance: TREPROSTINIL
     Indication: PRODUCT USED FOR UNKNOWN INDICATION
     Dosage: UNK
     Route: 058
     Dates: start: 20180927

REACTIONS (2)
  - Septic shock [Fatal]
  - Klebsiella infection [Unknown]

NARRATIVE: CASE EVENT DATE: 2018
